FAERS Safety Report 23123778 (Version 1)
Quarter: 2023Q4

REPORT INFORMATION
  Report Type: Report from Study
  Country: US (occurrence: US)
  Receive Date: 20231030
  Receipt Date: 20231030
  Transmission Date: 20240110
  Serious: Yes (Hospitalization)
  Sender: FDA-Public Use
  Company Number: US-Accord-387468

PATIENT
  Sex: Male
  Weight: 80.4 kg

DRUGS (1)
  1. CLOZAPINE [Suspect]
     Active Substance: CLOZAPINE
     Indication: Schizophrenia
     Dosage: 400MG BY MOUTH AT BEDTIME

REACTIONS (2)
  - Dizziness [Unknown]
  - Urinary tract infection [Unknown]
